FAERS Safety Report 12763534 (Version 1)
Quarter: 2016Q3

REPORT INFORMATION
  Report Type: Spontaneous
  Country: US (occurrence: US)
  Receive Date: 20160919
  Receipt Date: 20160919
  Transmission Date: 20161109
  Serious: No
  Sender: FDA-Public Use
  Company Number: None

PATIENT
  Age: 72 Year
  Sex: Male
  Weight: 119.25 kg

DRUGS (9)
  1. IBUPROPHEN [Suspect]
     Active Substance: IBUPROFEN
  2. MIRAPEX [Concomitant]
     Active Substance: PRAMIPEXOLE DIHYDROCHLORIDE
  3. LOSARTAN POTASSIUM. [Concomitant]
     Active Substance: LOSARTAN POTASSIUM
  4. REMICADE [Concomitant]
     Active Substance: INFLIXIMAB
  5. SYNTHROID [Concomitant]
     Active Substance: LEVOTHYROXINE SODIUM
  6. MONTELUKAST SODIUM. [Concomitant]
     Active Substance: MONTELUKAST SODIUM
  7. CLINDAMYCIN HCL ORAL CAPSULE 300 [Suspect]
     Active Substance: CLINDAMYCIN HYDROCHLORIDE
     Indication: RHINITIS
     Route: 048
     Dates: start: 20160918, end: 20160919
  8. MONOXICAM [Concomitant]
  9. HYDROCHLOROTHIAZIDE. [Concomitant]
     Active Substance: HYDROCHLOROTHIAZIDE

REACTIONS (3)
  - Dysphagia [None]
  - Inappropriate schedule of drug administration [None]
  - Lip swelling [None]

NARRATIVE: CASE EVENT DATE: 20160919
